FAERS Safety Report 4516230-4 (Version None)
Quarter: 2004Q4

REPORT INFORMATION
  Report Type: 
  Country: None (occurrence: None)
  Receive Date: 20041005
  Receipt Date: 20040420
  Transmission Date: 20050328
  Serious: Yes (Hospitalization)
  Sender: FDA-Public Use
  Company Number: 206025

PATIENT
  Age: 36 Year
  Sex: Male

DRUGS (1)
  1. CATHFLO ACTIVASE [Suspect]
     Indication: CATHETER RELATED COMPLICATION
     Dosage: 2 MG, SINGLE, INTRAVENOUS
     Route: 042
     Dates: start: 20040126, end: 20040126

REACTIONS (1)
  - INCISION SITE HAEMORRHAGE [None]
